FAERS Safety Report 5525694-9 (Version None)
Quarter: 2007Q4

REPORT INFORMATION
  Report Type: 
  Country: None (occurrence: None)
  Receive Date: 20071126
  Receipt Date: 20071114
  Transmission Date: 20080405
  Serious: Yes (Hospitalization, Other)
  Sender: FDA-Public Use
  Company Number: US-AMGEN-US250097

PATIENT
  Age: 42 Year
  Sex: Male

DRUGS (18)
  1. PROCRIT [Suspect]
     Indication: RENAL FAILURE CHRONIC
     Route: 058
     Dates: start: 20061001
  2. NEUPOGEN [Concomitant]
     Indication: NEUTROPENIA
     Route: 065
  3. PROGRAF [Concomitant]
  4. MYCOPHENOLATE MOFETIL [Concomitant]
  5. LANTUS [Concomitant]
     Route: 058
  6. PHOSLO [Concomitant]
     Route: 048
  7. NORVASC [Concomitant]
     Route: 048
  8. PROTONIX [Concomitant]
     Route: 048
  9. CLONIDINE [Concomitant]
  10. CIPROFLOXACIN [Concomitant]
     Route: 048
  11. METOPROLOL [Concomitant]
     Route: 048
  12. IRON SULFATETHIAMIN COMPOUND TAB [Concomitant]
     Route: 048
  13. NOVOLIN 70/30 [Concomitant]
  14. AMBIEN [Concomitant]
     Route: 048
  15. FOLIC ACID [Concomitant]
     Route: 048
  16. NEPHRO-VITE [Concomitant]
  17. MORPHINE SULFATE [Concomitant]
     Route: 042
  18. DAPSONE [Concomitant]
     Dates: end: 20071001

REACTIONS (7)
  - APLASIA PURE RED CELL [None]
  - CYTOMEGALOVIRUS ANTIBODY POSITIVE [None]
  - HERNIA [None]
  - INFECTION [None]
  - KIDNEY TRANSPLANT REJECTION [None]
  - NEUTROPENIA [None]
  - WEIGHT DECREASED [None]
